FAERS Safety Report 20608226 (Version 1)
Quarter: 2022Q1

REPORT INFORMATION
  Report Type: Spontaneous
  Country: US (occurrence: US)
  Receive Date: 20220317
  Receipt Date: 20220317
  Transmission Date: 20220424
  Serious: Yes (Other)
  Sender: FDA-Public Use
  Company Number: US-NOVARTISPH-NVSC2022US060473

PATIENT
  Age: 42 Year
  Sex: Female

DRUGS (1)
  1. MAYZENT [Suspect]
     Active Substance: SIPONIMOD
     Indication: Multiple sclerosis
     Dosage: 2 MG, QD
     Route: 048

REACTIONS (4)
  - Pulmonary embolism [Unknown]
  - Multiple sclerosis relapse [Recovered/Resolved]
  - Gait inability [Unknown]
  - Movement disorder [Unknown]

NARRATIVE: CASE EVENT DATE: 20200101
